FAERS Safety Report 25680718 (Version 1)
Quarter: 2025Q3

REPORT INFORMATION
  Report Type: Spontaneous
  Country: US (occurrence: None)
  Receive Date: 20250813
  Receipt Date: 20250813
  Transmission Date: 20251021
  Serious: Yes (Death)
  Sender: FDA-CTU
  Company Number: None

PATIENT
  Age: 66 Year
  Sex: Male

DRUGS (9)
  1. COLLAGENASE SANTYL [Suspect]
     Active Substance: COLLAGENASE CLOSTRIDIUM HISTOLYTICUM
     Indication: Wound treatment
     Dosage: FREQUENCY : DAILY;?
     Route: 061
     Dates: start: 20250606, end: 20250813
  2. BACTRIM DS (800-160 MG) TABLETS [Concomitant]
  3. BUSPIRONE 10 MG TABLETS [Concomitant]
  4. CLONIDINE [Concomitant]
     Active Substance: CLONIDINE
  5. METFORMIN HYDROCHLORIDE [Concomitant]
     Active Substance: METFORMIN HYDROCHLORIDE
  6. MOTRIN 400MG TABLETS [Concomitant]
  7. MULTIVITAMIN ADULT 50+ TABLETS [Concomitant]
  8. TYLENOL [Concomitant]
     Active Substance: ACETAMINOPHEN
  9. VITAMIN C 1000MG TABLETS [Concomitant]

REACTIONS (1)
  - Death [None]
